FAERS Safety Report 6711983-9 (Version None)
Quarter: 2010Q2

REPORT INFORMATION
  Report Type: 
  Country: None (occurrence: None)
  Receive Date: 20100505
  Receipt Date: 20100503
  Transmission Date: 20101027
  Serious: Yes (Other)
  Sender: FDA-Public Use
  Company Number: US-TEVA-224539USA

PATIENT
  Sex: Male

DRUGS (3)
  1. FEXOFENADINE HCL AND PSEUDOEPHEDRINE HCL [Suspect]
     Indication: POSTNASAL DRIP
     Dosage: 60MG/120MG TWICE A DAY
     Route: 048
     Dates: start: 20100101
  2. CLOPIDOGREL [Concomitant]
  3. ATENOLOL [Concomitant]
     Indication: HYPERTENSION

REACTIONS (3)
  - MICTURITION DISORDER [None]
  - PENILE PAIN [None]
  - URINARY TRACT OBSTRUCTION [None]
